FAERS Safety Report 20905838 (Version 2)
Quarter: 2022Q2

REPORT INFORMATION
  Report Type: Report from Study
  Country: CH (occurrence: CH)
  Receive Date: 20220602
  Receipt Date: 20220603
  Transmission Date: 20220721
  Serious: Yes (Hospitalization, Other)
  Sender: FDA-Public Use
  Company Number: CH-PFM-2022-00271

PATIENT
  Age: 54 Year
  Sex: Male
  Weight: 69 kg

DRUGS (24)
  1. ENCORAFENIB [Suspect]
     Active Substance: ENCORAFENIB
     Indication: Malignant melanoma
     Dosage: 450 MG, QD (1/DAY)
     Route: 048
     Dates: start: 20211201, end: 20220116
  2. ENCORAFENIB [Suspect]
     Active Substance: ENCORAFENIB
     Dosage: UNK
     Route: 065
     Dates: start: 20220102
  3. BINIMETINIB [Suspect]
     Active Substance: BINIMETINIB
     Indication: Malignant melanoma
     Dosage: 45 MG, BID (2/DAY)
     Route: 048
     Dates: start: 20211201, end: 20220116
  4. BINIMETINIB [Suspect]
     Active Substance: BINIMETINIB
     Dosage: UNK
     Route: 065
     Dates: start: 20220102
  5. DEXAMETHASONE [Concomitant]
     Active Substance: DEXAMETHASONE
     Indication: Metastases to central nervous system
     Dosage: UNK
     Route: 065
     Dates: start: 202109, end: 20220116
  6. MOMETASONE [Concomitant]
     Active Substance: MOMETASONE
     Indication: Prophylaxis
     Dosage: UNK
     Route: 065
     Dates: start: 20201104, end: 20220116
  7. CEFTRIAXONE [Concomitant]
     Active Substance: CEFTRIAXONE
     Indication: Prophylaxis
     Dosage: UNK
     Route: 065
     Dates: start: 20211215, end: 20211215
  8. CEFTRIAXONE [Concomitant]
     Active Substance: CEFTRIAXONE
     Indication: Abdominal pain
     Dosage: UNK
     Route: 065
     Dates: start: 20220117, end: 20220120
  9. CEFTRIAXONE [Concomitant]
     Active Substance: CEFTRIAXONE
     Indication: Peritonitis
  10. CIPROFLOXACIN HYDROCHLORIDE [Concomitant]
     Active Substance: CIPROFLOXACIN HYDROCHLORIDE
     Indication: Prophylaxis
     Dosage: UNK
     Route: 065
     Dates: start: 20211215, end: 20211229
  11. CIPROFLOXACIN HYDROCHLORIDE [Concomitant]
     Active Substance: CIPROFLOXACIN HYDROCHLORIDE
     Indication: Abdominal pain
  12. METRONIDAZOLE [Concomitant]
     Active Substance: METRONIDAZOLE
     Indication: Prophylaxis
     Dosage: UNK
     Route: 065
     Dates: start: 20211215, end: 20211229
  13. METRONIDAZOLE [Concomitant]
     Active Substance: METRONIDAZOLE
     Indication: Abdominal pain
     Dosage: UNK
     Route: 065
     Dates: start: 20220116, end: 20220120
  14. METRONIDAZOLE [Concomitant]
     Active Substance: METRONIDAZOLE
     Indication: Peritonitis
  15. LACTASE [Concomitant]
     Active Substance: LACTASE
     Dosage: UNK
     Route: 065
     Dates: start: 20220113, end: 20220116
  16. ENOXAPARIN [Concomitant]
     Active Substance: ENOXAPARIN
     Indication: Prophylaxis
     Dosage: UNK
     Route: 065
     Dates: start: 20220116, end: 20220120
  17. ASPIRIN [Concomitant]
     Active Substance: ASPIRIN
     Indication: Prophylaxis
     Dosage: UNK
     Route: 065
     Dates: start: 20220117
  18. ROSUVASTATIN [Concomitant]
     Active Substance: ROSUVASTATIN
     Indication: Prophylaxis
     Dosage: UNK
     Route: 065
     Dates: start: 20220116
  19. PANTOPRAZOLE [Concomitant]
     Active Substance: PANTOPRAZOLE
     Indication: Prophylaxis
     Dosage: UNK
     Route: 065
     Dates: start: 20220117, end: 20220118
  20. PANTOPRAZOLE [Concomitant]
     Active Substance: PANTOPRAZOLE
     Dosage: UNK
     Route: 065
     Dates: start: 20220119, end: 20220121
  21. LORAZEPAM [Concomitant]
     Active Substance: LORAZEPAM
     Indication: Prophylaxis
     Dosage: UNK
     Route: 065
     Dates: start: 20220116, end: 20220117
  22. LORAZEPAM [Concomitant]
     Active Substance: LORAZEPAM
     Dosage: UNK
     Route: 065
     Dates: start: 20220119, end: 20220120
  23. ASPIRIN [Concomitant]
     Active Substance: ASPIRIN
     Indication: Prophylaxis
     Dosage: UNK
     Route: 065
     Dates: start: 20220203
  24. LACTODIGEST [Concomitant]
     Dosage: UNK
     Dates: start: 20220203

REACTIONS (10)
  - Peritonitis [Recovered/Resolved]
  - Peritonitis [Not Recovered/Not Resolved]
  - Abdominal pain [Recovered/Resolved]
  - Nausea [Recovered/Resolved]
  - Fatigue [Recovered/Resolved]
  - Decreased appetite [Recovered/Resolved]
  - Impaired healing [Recovered/Resolved]
  - Vitamin D deficiency [Not Recovered/Not Resolved]
  - Vision blurred [Recovered/Resolved]
  - Fatigue [Not Recovered/Not Resolved]

NARRATIVE: CASE EVENT DATE: 20211213
